FAERS Safety Report 17267085 (Version 3)
Quarter: 2020Q1

REPORT INFORMATION
  Report Type: Spontaneous
  Country: CA (occurrence: CA)
  Receive Date: 20200114
  Receipt Date: 20200318
  Transmission Date: 20200409
  Serious: Yes (Other)
  Sender: FDA-Public Use
  Company Number: CA-UCBSA-2020001131

PATIENT
  Sex: Male
  Weight: 80 kg

DRUGS (6)
  1. MIRAPEX [Concomitant]
     Active Substance: PRAMIPEXOLE DIHYDROCHLORIDE
     Indication: PRODUCT USED FOR UNKNOWN INDICATION
  2. LIPITOR [Concomitant]
     Active Substance: ATORVASTATIN CALCIUM
     Indication: PRODUCT USED FOR UNKNOWN INDICATION
  3. BRIVLERA [Suspect]
     Active Substance: BRIVARACETAM
     Indication: EPILEPSY
     Dosage: 100 MILLIGRAM, 2X/DAY (BID)
     Route: 048
     Dates: start: 20191125, end: 20191126
  4. BRIVLERA [Suspect]
     Active Substance: BRIVARACETAM
     Dosage: TAPPERING DOSE
     Route: 048
  5. LAMICTAL [Concomitant]
     Active Substance: LAMOTRIGINE
     Indication: PRODUCT USED FOR UNKNOWN INDICATION
  6. COVERSYL [PERINDOPRIL ERBUMINE] [Concomitant]
     Active Substance: PERINDOPRIL ERBUMINE
     Indication: PRODUCT USED FOR UNKNOWN INDICATION

REACTIONS (14)
  - Prostatomegaly [Unknown]
  - Dyspnoea [Not Recovered/Not Resolved]
  - Lethargy [Recovered/Resolved]
  - Abdominal discomfort [Recovered/Resolved]
  - Hyperchlorhydria [Recovered/Resolved]
  - Seizure [Recovered/Resolved]
  - Chest discomfort [Recovered/Resolved]
  - Haematuria [Recovered/Resolved]
  - Arthritis [Unknown]
  - Flatulence [Recovered/Resolved]
  - Bundle branch block left [Unknown]
  - Urinary retention [Recovered/Resolved]
  - Somnolence [Recovering/Resolving]
  - Blood pressure increased [Recovering/Resolving]
